FAERS Safety Report 8956134 (Version 2)
Quarter: 2012Q4

REPORT INFORMATION
  Report Type: 
  Country: JP (occurrence: JP)
  Receive Date: 20121210
  Receipt Date: 20121219
  Transmission Date: 20130627
  Serious: Yes (Other)
  Sender: FDA-Public Use
  Company Number: JP-SANOFI-AVENTIS-2012SA089606

PATIENT
  Age: 38 Year
  Sex: Female

DRUGS (11)
  1. PREDNISOLONE [Suspect]
     Indication: IDIOPATHIC THROMBOCYTOPENIC PURPURA
     Route: 065
  2. PREDNISOLONE [Suspect]
     Indication: IDIOPATHIC THROMBOCYTOPENIC PURPURA
     Route: 065
  3. PREDNISOLONE [Suspect]
     Indication: IDIOPATHIC THROMBOCYTOPENIC PURPURA
     Route: 065
  4. PREDNISOLONE [Suspect]
     Indication: IDIOPATHIC THROMBOCYTOPENIC PURPURA
     Route: 065
  5. PREDNISOLONE [Suspect]
     Indication: IDIOPATHIC THROMBOCYTOPENIC PURPURA
     Route: 065
  6. DOCETAXEL [Suspect]
     Indication: ESOPHAGEAL CANCER
     Route: 065
  7. DOCETAXEL [Suspect]
     Indication: ESOPHAGEAL CANCER
     Route: 065
  8. CISPLATIN [Suspect]
     Indication: ESOPHAGEAL CANCER
     Route: 065
  9. CISPLATIN [Suspect]
     Indication: ESOPHAGEAL CANCER
     Route: 065
  10. FLUOROURACIL [Suspect]
     Indication: ESOPHAGEAL CANCER
     Route: 065
  11. FLUOROURACIL [Suspect]
     Indication: ESOPHAGEAL CANCER
     Route: 065

REACTIONS (2)
  - Drug resistance [Unknown]
  - Platelet count decreased [Recovered/Resolved]
